FAERS Safety Report 8876940 (Version 1)
Quarter: 2012Q4

REPORT INFORMATION
  Report Type: 
  Country: CN (occurrence: CN)
  Receive Date: 20121030
  Receipt Date: 20121030
  Transmission Date: 20130627
  Serious: Yes (Other)
  Sender: FDA-Public Use
  Company Number: CN-JNJFOC-20121010540

PATIENT

DRUGS (1)
  1. DUROGESIC D-TRANS [Suspect]
     Indication: CANCER PAIN
     Route: 062

REACTIONS (5)
  - Depression [Recovering/Resolving]
  - Drug ineffective [Recovering/Resolving]
  - Dizziness [Recovering/Resolving]
  - Nausea [Recovering/Resolving]
  - Constipation [Recovering/Resolving]
